FAERS Safety Report 6909175-3 (Version None)
Quarter: 2010Q3

REPORT INFORMATION
  Report Type: 
  Country: None (occurrence: None)
  Receive Date: 20100805
  Receipt Date: 20090805
  Transmission Date: 20110219
  Serious: No
  Sender: FDA-Public Use
  Company Number: US-TYCO HEALTHCARE/MALLINCKRODT-T200901471

PATIENT
  Sex: Female
  Weight: 56.689 kg

DRUGS (5)
  1. MORPHINE [Suspect]
     Indication: PAIN
     Dosage: 30 MG, BID
     Route: 048
     Dates: start: 20090101, end: 20090101
  2. MORPHINE [Suspect]
     Dosage: 30 MG, QD
     Dates: start: 20090101
  3. VYVANSE [Suspect]
     Indication: ATTENTION DEFICIT/HYPERACTIVITY DISORDER
     Dosage: 70 MG, QD
     Route: 048
     Dates: start: 20090101
  4. LORTAB [Suspect]
     Indication: PAIN
     Dosage: 10 MG, 4 TIMES DAILY
     Route: 048
     Dates: start: 20090101
  5. VALIUM [Concomitant]
     Indication: POST-TRAUMATIC STRESS DISORDER
     Dosage: 10 MG, TID
     Route: 048
     Dates: start: 20090101

REACTIONS (2)
  - DYSPNOEA [None]
  - STAPHYLOCOCCAL INFECTION [None]
